FAERS Safety Report 19085493 (Version 1)
Quarter: 2021Q2

REPORT INFORMATION
  Report Type: Spontaneous
  Country: US (occurrence: US)
  Receive Date: 20210401
  Receipt Date: 20210401
  Transmission Date: 20210717
  Serious: No
  Sender: FDA-Public Use
  Company Number: US-IBSA PHARMA-2020-IBS-00673

PATIENT
  Age: 75 Year
  Weight: 58 kg

DRUGS (1)
  1. FLECTOR [Suspect]
     Active Substance: DICLOFENAC EPOLAMINE
     Indication: BACK PAIN
     Dosage: UNK 2X/DAY (EVERY 12 HOURS)
     Route: 061

REACTIONS (2)
  - Feeling abnormal [Unknown]
  - Intentional product misuse [Unknown]
